FAERS Safety Report 10219515 (Version 1)
Quarter: 2014Q2

REPORT INFORMATION
  Report Type: Report from Study
  Country: CO (occurrence: CO)
  Receive Date: 20140605
  Receipt Date: 20140605
  Transmission Date: 20141212
  Serious: Yes (Life-Threatening)
  Sender: FDA-Public Use
  Company Number: CO-BRISTOL-MYERS SQUIBB COMPANY-20870358

PATIENT
  Age: 52 Year
  Sex: Female

DRUGS (1)
  1. ABATACEPT SUBQ INJECTION 125MG/ML [Suspect]
     Indication: RHEUMATOID ARTHRITIS
     Dosage: LAST DOSE: 27MAY14
     Route: 058
     Dates: start: 20140317

REACTIONS (3)
  - Arrhythmia [Unknown]
  - Infarction [Unknown]
  - Blood pressure increased [Unknown]
